FAERS Safety Report 9746398 (Version 2)
Quarter: 2013Q4

REPORT INFORMATION
  Report Type: Spontaneous
  Country: IT (occurrence: IT)
  Receive Date: 20131211
  Receipt Date: 20131223
  Transmission Date: 20140711
  Serious: Yes (Hospitalization)
  Sender: FDA-Public Use
  Company Number: IT-PFIZER INC-2013351960

PATIENT
  Age: 63 Year
  Sex: Female

DRUGS (3)
  1. FARLUTAL [Suspect]
     Indication: MENOPAUSAL SYMPTOMS
     Dosage: 10 MG, CYCLIC (TAKEN FOR 10 DAYS/ MONTH)
     Route: 048
  2. ESTRADERM MX [Suspect]
     Indication: HORMONE REPLACEMENT THERAPY
     Dosage: 50 UG, DAILY
     Route: 062
  3. EUTIROX [Concomitant]
     Indication: HYPOTHYROIDISM
     Dosage: 75 UG, UNK
     Route: 048
     Dates: start: 1993

REACTIONS (1)
  - Acute myocardial infarction [Recovering/Resolving]
